FAERS Safety Report 12447343 (Version 1)
Quarter: 2016Q2

REPORT INFORMATION
  Report Type: Spontaneous
  Country: GB (occurrence: GB)
  Receive Date: 20160608
  Receipt Date: 20160608
  Transmission Date: 20160815
  Serious: Yes (Life-Threatening, Hospitalization, Disabling, Other)
  Sender: FDA-Public Use
  Company Number: GB-GLAXOSMITHKLINE-GB2016081417

PATIENT
  Age: 16 Year
  Sex: Female
  Weight: 50 kg

DRUGS (1)
  1. MALARONE [Suspect]
     Active Substance: ATOVAQUONE\PROGUANIL HYDROCHLORIDE
     Indication: MALARIA PROPHYLAXIS
     Dosage: PROPHYLACTIC RECOMMENDED DOSE
     Route: 065
     Dates: start: 201406, end: 201407

REACTIONS (6)
  - Suicide attempt [Not Recovered/Not Resolved]
  - Anorexia nervosa [Recovering/Resolving]
  - Major depression [Not Recovered/Not Resolved]
  - Intentional overdose [Unknown]
  - Bulimia nervosa [Not Recovered/Not Resolved]
  - Intentional self-injury [Not Recovered/Not Resolved]

NARRATIVE: CASE EVENT DATE: 2014
